FAERS Safety Report 21714257 (Version 1)
Quarter: 2022Q4

REPORT INFORMATION
  Report Type: Spontaneous
  Country: US (occurrence: None)
  Receive Date: 20221209
  Receipt Date: 20221209
  Transmission Date: 20230113
  Serious: Yes (Death)
  Sender: FDA-Public Use
  Company Number: None

PATIENT
  Age: 74 Year
  Sex: Male
  Weight: 81 kg

DRUGS (1)
  1. TOCILIZUMAB [Suspect]
     Active Substance: TOCILIZUMAB
     Indication: COVID-19
     Dosage: FREQUENCY : ONCE;?
     Route: 042
     Dates: start: 20220113, end: 20220113

REACTIONS (4)
  - Refusal of treatment by patient [None]
  - Ischaemic hepatitis [None]
  - Acute kidney injury [None]
  - Endotracheal intubation [None]

NARRATIVE: CASE EVENT DATE: 20220120
